FAERS Safety Report 6860456-1 (Version None)
Quarter: 2010Q3

REPORT INFORMATION
  Report Type: 
  Country: None (occurrence: None)
  Receive Date: 20100719
  Receipt Date: 20100719
  Transmission Date: 20110219
  Serious: Yes (Death)
  Sender: FDA-Public Use
  Company Number: None

PATIENT
  Age: 84 Year
  Sex: Male
  Weight: 87.0906 kg

DRUGS (2)
  1. COZAAR [Suspect]
     Indication: CARDIAC FAILURE CONGESTIVE
     Dosage: MANY YEARS
  2. COZAAR [Suspect]
     Indication: HYPERTENSION
     Dosage: MANY YEARS

REACTIONS (5)
  - BLADDER CANCER [None]
  - GASTROINTESTINAL CARCINOMA [None]
  - MESENTERIC ARTERY EMBOLISM [None]
  - PANCREATIC CARCINOMA [None]
  - SKIN CANCER [None]
